FAERS Safety Report 5170571-9 (Version None)
Quarter: 2006Q4

REPORT INFORMATION
  Report Type: 
  Country: None (occurrence: None)
  Receive Date: 20061205
  Receipt Date: 20061122
  Transmission Date: 20070319
  Serious: Yes (Other)
  Sender: FDA-Public Use
  Company Number: 2006035437

PATIENT
  Age: 32 Year
  Sex: Female

DRUGS (2)
  1. DALTEPRAIN (DALTEPARIN) [Suspect]
     Dosage: (5000 I.U.), INTRAVENOUS
     Route: 042
  2. WARFARIN SODIUM [Concomitant]

REACTIONS (5)
  - DRUG EXPOSURE DURING PREGNANCY [None]
  - PREGNANCY [None]
  - PRURITUS [None]
  - STILLBIRTH [None]
  - THROMBOSIS [None]
